FAERS Safety Report 6355021-9 (Version None)
Quarter: 2009Q3

REPORT INFORMATION
  Report Type: 
  Country: None (occurrence: None)
  Receive Date: 20090914
  Receipt Date: 20090904
  Transmission Date: 20100115
  Serious: Yes (Other)
  Sender: FDA-Public Use
  Company Number: B0588135A

PATIENT
  Sex: Female

DRUGS (4)
  1. REQUIP [Suspect]
     Indication: PARKINSONISM
     Dosage: 5MG PER DAY
     Route: 048
     Dates: start: 20060824
  2. MADOPARK [Suspect]
     Indication: PARKINSONISM
     Route: 048
     Dates: start: 20070511
  3. MADOPARK QUICK MITE [Suspect]
     Indication: PARKINSONISM
     Route: 048
     Dates: start: 20080617
  4. PRAMIPEXOLE DIHYDROCHLORIDE [Concomitant]

REACTIONS (2)
  - MENTAL DISORDER [None]
  - PATHOLOGICAL GAMBLING [None]
